FAERS Safety Report 13912880 (Version 3)
Quarter: 2017Q4

REPORT INFORMATION
  Report Type: Spontaneous
  Country: US (occurrence: US)
  Receive Date: 20170828
  Receipt Date: 20171020
  Transmission Date: 20180320
  Serious: No
  Sender: FDA-Public Use
  Company Number: US-009507513-1708USA011212

PATIENT
  Age: 16 Year
  Sex: Female
  Weight: 55.33 kg

DRUGS (2)
  1. NEXPLANON [Suspect]
     Active Substance: ETONOGESTREL
     Indication: CONTRACEPTION
     Dosage: ONE IMPLANT, 3 YEARS
     Route: 059
     Dates: start: 20170802, end: 20170906
  2. NEXPLANON [Suspect]
     Active Substance: ETONOGESTREL
     Dosage: ONE IMPLANT, 3 YEARS
     Route: 059
     Dates: start: 20170906

REACTIONS (3)
  - Device breakage [Recovered/Resolved]
  - Device kink [Recovered/Resolved]
  - No adverse event [Unknown]

NARRATIVE: CASE EVENT DATE: 20170822
